FAERS Safety Report 16433701 (Version 2)
Quarter: 2019Q2

REPORT INFORMATION
  Report Type: Spontaneous
  Country: DE (occurrence: DE)
  Receive Date: 20190614
  Receipt Date: 20190626
  Transmission Date: 20190711
  Serious: No
  Sender: FDA-Public Use
  Company Number: DE-009507513-1904DEU009267

PATIENT
  Age: 18 Year
  Sex: Female

DRUGS (5)
  1. SIROLIMUS. [Suspect]
     Active Substance: SIROLIMUS
     Indication: NEUROBLASTOMA
     Dosage: IN LINE WITH THE RIST HGG TRIAL PROTOCOL
     Dates: start: 201101, end: 201105
  2. ZOLEDRONIC ACID [Concomitant]
     Active Substance: ZOLEDRONIC ACID
     Dosage: EVERY 4 WEEKS
     Dates: start: 201101
  3. IRINOTECAN HYDROCHLORIDE. [Suspect]
     Active Substance: IRINOTECAN HYDROCHLORIDE
     Indication: NEUROBLASTOMA
     Dosage: IN LINE WITH THE RIST HGG TRIAL PROTOCOL
     Dates: start: 201101, end: 201105
  4. DASATINIB. [Suspect]
     Active Substance: DASATINIB
     Indication: NEUROBLASTOMA
     Dosage: IN LINE WITH THE RIST HGG TRIAL PROTOCOL
     Dates: start: 201101, end: 201105
  5. TEMOZOLOMIDE. [Suspect]
     Active Substance: TEMOZOLOMIDE
     Indication: NEUROBLASTOMA
     Dosage: IN LINE WITH THE RIST HGG TRIAL PROTOCOL
     Route: 048
     Dates: start: 201101, end: 201105

REACTIONS (4)
  - Decreased appetite [Recovered/Resolved]
  - Nausea [Recovered/Resolved]
  - Drug intolerance [Unknown]
  - Mucosal disorder [Recovered/Resolved]

NARRATIVE: CASE EVENT DATE: 2011
